FAERS Safety Report 5567586-5 (Version None)
Quarter: 2007Q4

REPORT INFORMATION
  Report Type: 
  Country: None (occurrence: None)
  Receive Date: 20071219
  Receipt Date: 20071210
  Transmission Date: 20080405
  Serious: Yes (Other)
  Sender: FDA-Public Use
  Company Number: US-PFIZER INC-2007103611

PATIENT
  Sex: Male
  Weight: 108.9 kg

DRUGS (2)
  1. LIPITOR [Suspect]
     Indication: BLOOD CHOLESTEROL
  2. LEVOXYL [Concomitant]

REACTIONS (6)
  - ABDOMINAL PAIN [None]
  - MUSCLE RIGIDITY [None]
  - MUSCLE TIGHTNESS [None]
  - MUSCULOSKELETAL STIFFNESS [None]
  - SUICIDAL IDEATION [None]
  - WEIGHT INCREASED [None]
